FAERS Safety Report 24943797 (Version 2)
Quarter: 2025Q1

REPORT INFORMATION
  Report Type: Spontaneous
  Country: IL (occurrence: IL)
  Receive Date: 20250207
  Receipt Date: 20250306
  Transmission Date: 20250408
  Serious: Yes (Hospitalization, Other)
  Sender: SAREPTA THERAPEUTICS
  Company Number: IL-SAREPTA THERAPEUTICS INC.-SRP2025-005572

PATIENT

DRUGS (3)
  1. EXONDYS 51 [Suspect]
     Active Substance: ETEPLIRSEN
     Indication: Duchenne muscular dystrophy
     Dates: start: 2017
  2. EXONDYS 51 [Suspect]
     Active Substance: ETEPLIRSEN
  3. EXONDYS 51 [Suspect]
     Active Substance: ETEPLIRSEN
     Dates: start: 20250119

REACTIONS (3)
  - Testicular torsion [Recovered/Resolved]
  - Weight decreased [Recovered/Resolved]
  - Weight decreased [Recovered/Resolved]

NARRATIVE: CASE EVENT DATE: 20240201
